FAERS Safety Report 4852565-3 (Version None)
Quarter: 2005Q4

REPORT INFORMATION
  Report Type: 
  Country: None (occurrence: None)
  Receive Date: 20051123
  Receipt Date: 20050526
  Transmission Date: 20060501
  Serious: Yes (Hospitalization)
  Sender: FDA-Public Use
  Company Number: 05USA0123

PATIENT
  Sex: Female

DRUGS (1)
  1. GLIADEL [Suspect]
     Indication: GLIOBLASTOMA MULTIFORME
     Dates: start: 20050430

REACTIONS (3)
  - BRAIN OEDEMA [None]
  - CONDITION AGGRAVATED [None]
  - SWELLING [None]
